FAERS Safety Report 6270239-1 (Version None)
Quarter: 2009Q3

REPORT INFORMATION
  Report Type: 
  Country: None (occurrence: None)
  Receive Date: 20090716
  Receipt Date: 20090714
  Transmission Date: 20100115
  Serious: Yes (Life-Threatening, Hospitalization, Other)
  Sender: FDA-Public Use
  Company Number: US-BAYER-200925134GPV

PATIENT
  Age: 59 Year
  Sex: Male
  Weight: 103 kg

DRUGS (3)
  1. SORAFENIB [Suspect]
     Indication: RENAL CELL CARCINOMA
     Dosage: TOTAL DAILY DOSE: 800 MG
     Route: 048
     Dates: start: 20090616, end: 20090629
  2. FRAXIPARINE [Concomitant]
     Indication: DEEP VEIN THROMBOSIS
     Dates: start: 20090611
  3. ZOPICLONE [Concomitant]
     Indication: SLEEP DISORDER
     Dates: start: 20090614

REACTIONS (4)
  - ATRIAL FIBRILLATION [None]
  - CONFUSIONAL STATE [None]
  - PYREXIA [None]
  - SYSTEMIC INFLAMMATORY RESPONSE SYNDROME [None]
